FAERS Safety Report 23119421 (Version 8)
Quarter: 2024Q1

REPORT INFORMATION
  Report Type: Spontaneous
  Country: FR (occurrence: FR)
  Receive Date: 20231028
  Receipt Date: 20240314
  Transmission Date: 20240410
  Serious: Yes (Death, Other)
  Sender: FDA-Public Use
  Company Number: None

PATIENT
  Age: 79 Year
  Sex: Female
  Weight: 79 kg

DRUGS (7)
  1. CASPOFUNGIN ACETATE [Suspect]
     Active Substance: CASPOFUNGIN ACETATE
     Indication: Systemic candida
     Dosage: UNK
     Route: 042
     Dates: start: 20230820, end: 20230827
  2. LEVOFLOXACIN [Suspect]
     Active Substance: LEVOFLOXACIN
     Indication: Sepsis
     Dosage: 500 MG 2 FOIS PAR JOU
     Route: 048
     Dates: start: 20230820, end: 20230825
  3. ONDANSETRON [Suspect]
     Active Substance: ONDANSETRON
     Indication: Prophylaxis of nausea and vomiting
     Dosage: 8 MG, QD
     Route: 042
     Dates: start: 20230820, end: 20230827
  4. SPIRAMYCIN [Suspect]
     Active Substance: SPIRAMYCIN
     Indication: Sepsis
     Dosage: 3 MUI 3 TIMES PER DAYROVAMYCINE 3 MILLIONS U I, FILM COATED TABLET UNIT DOSE- 9 10^6 IU
     Route: 048
     Dates: start: 20230825, end: 20230828
  5. VANCOMYCIN [Suspect]
     Active Substance: VANCOMYCIN
     Indication: Sepsis
     Dosage: 2.5 G, QD
     Route: 042
     Dates: start: 20230820, end: 20230827
  6. VENETOCLAX [Suspect]
     Active Substance: VENETOCLAX
     Indication: Acute myeloid leukaemia
     Dosage: 200 MG, QD
     Route: 048
     Dates: start: 20230823, end: 20230827
  7. VIDAZA [Suspect]
     Active Substance: AZACITIDINE
     Indication: Acute myeloid leukaemia
     Dosage: 140 MG QD (140 MILLIGRAM) (70MG 2 TIMES PER DAYVIDAZA 100 MG, POWDER FOR SUSPENSION FOR INJECTION)
     Route: 058
     Dates: start: 20230823, end: 20230827

REACTIONS (2)
  - Hyperbilirubinaemia [Fatal]
  - Jaundice [Fatal]

NARRATIVE: CASE EVENT DATE: 20230828
